FAERS Safety Report 19862642 (Version 1)
Quarter: 2021Q3

REPORT INFORMATION
  Report Type: Spontaneous
  Country: ES (occurrence: ES)
  Receive Date: 20210921
  Receipt Date: 20210921
  Transmission Date: 20211014
  Serious: Yes (Hospitalization)
  Sender: FDA-Public Use
  Company Number: ES-TEVA-2021-ES-1955233

PATIENT
  Age: 79 Year
  Sex: Female

DRUGS (3)
  1. LETROZOLE. [Suspect]
     Active Substance: LETROZOLE
     Indication: BREAST CANCER FEMALE
  2. HEPARIN [Suspect]
     Active Substance: HEPARIN SODIUM
     Indication: FIBRINOLYSIS
     Route: 042
  3. LETROZOLE. [Suspect]
     Active Substance: LETROZOLE
     Indication: BREAST CANCER STAGE I
     Route: 065

REACTIONS (4)
  - Hypoxia [Recovered/Resolved]
  - Pulmonary embolism [Recovered/Resolved]
  - Aortic thrombosis [Recovered/Resolved]
  - Treatment failure [Unknown]
